FAERS Safety Report 5512887-X (Version None)
Quarter: 2007Q4

REPORT INFORMATION
  Report Type: 
  Country: None (occurrence: None)
  Receive Date: 20071112
  Receipt Date: 20071105
  Transmission Date: 20080405
  Serious: Yes (Other)
  Sender: FDA-Public Use
  Company Number: A0689545A

PATIENT
  Age: 57 Year
  Sex: Female

DRUGS (3)
  1. LAMICTAL [Suspect]
     Dosage: 150MG SINGLE DOSE
     Route: 048
     Dates: start: 20071023, end: 20071023
  2. ZOLOFT [Concomitant]
  3. SEROQUEL [Concomitant]

REACTIONS (3)
  - DIARRHOEA [None]
  - MEDICATION ERROR [None]
  - NAUSEA [None]
